FAERS Safety Report 19738798 (Version 1)
Quarter: 2021Q3

REPORT INFORMATION
  Report Type: Spontaneous
  Country: US (occurrence: US)
  Receive Date: 20210823
  Receipt Date: 20210823
  Transmission Date: 20211014
  Serious: Yes (Other)
  Sender: FDA-Public Use
  Company Number: US-ASTRAZENECA-2021A693240

PATIENT

DRUGS (4)
  1. PROTONIX [Suspect]
     Active Substance: PANTOPRAZOLE SODIUM
     Dosage: UNK
     Route: 065
  2. PRILOSEC OTC [Suspect]
     Active Substance: OMEPRAZOLE MAGNESIUM
     Dosage: UNK
     Route: 048
  3. PRILOSEC [Suspect]
     Active Substance: OMEPRAZOLE MAGNESIUM
     Route: 048
  4. PREVACID [Suspect]
     Active Substance: LANSOPRAZOLE
     Route: 065

REACTIONS (8)
  - Hyperchlorhydria [Unknown]
  - Chronic kidney disease [Unknown]
  - Renal failure [Unknown]
  - Pain [Unknown]
  - Rebound effect [Unknown]
  - Drug dependence [Unknown]
  - Acute kidney injury [Unknown]
  - Rebound acid hypersecretion [Unknown]
